FAERS Safety Report 6150198-2 (Version None)
Quarter: 2009Q2

REPORT INFORMATION
  Report Type: 
  Country: None (occurrence: None)
  Receive Date: 20090409
  Receipt Date: 20090329
  Transmission Date: 20091009
  Serious: Yes (Other)
  Sender: FDA-Public Use
  Company Number: US-PFIZER INC-2009192399

PATIENT
  Sex: Female
  Weight: 52.608 kg

DRUGS (4)
  1. CHANTIX [Suspect]
     Indication: SMOKING CESSATION THERAPY
     Dosage: 0.5 MG, 1X/DAY
     Dates: start: 20070101, end: 20081001
  2. TOPAMAX [Concomitant]
     Dosage: UNK
  3. GEODON [Concomitant]
     Dosage: UNK
  4. PROZAC [Concomitant]
     Dosage: UNK

REACTIONS (1)
  - HOMICIDAL IDEATION [None]
